FAERS Safety Report 13072105 (Version 3)
Quarter: 2017Q1

REPORT INFORMATION
  Report Type: Report from Study
  Country: DE (occurrence: DE)
  Receive Date: 20161229
  Receipt Date: 20170307
  Transmission Date: 20170428
  Serious: Yes (Hospitalization, Disabling)
  Sender: FDA-Public Use
  Company Number: DE-ASTELLAS-2016US050640

PATIENT
  Age: 77 Year
  Sex: Male

DRUGS (21)
  1. PROFACT [Concomitant]
     Active Substance: BUSERELIN ACETATE
     Indication: PROSTATE CANCER
     Dosage: 9.9 MG, EVERY 3 MONTHS
     Route: 058
     Dates: start: 2005
  2. MADOPAR [Concomitant]
     Active Substance: BENSERAZIDE HYDROCHLORIDE\LEVODOPA
     Indication: PARKINSON^S DISEASE
     Dosage: 100/25, ONCE DAILY (EVENING)
     Route: 048
     Dates: start: 20160413
  3. PRAMIPEXOLE. [Concomitant]
     Active Substance: PRAMIPEXOLE
     Indication: PRODUCT USED FOR UNKNOWN INDICATION
     Dosage: 0.35 MG, THRICE DAILY
     Route: 065
  4. MCP [Concomitant]
     Active Substance: METOCLOPRAMIDE HYDROCHLORIDE
     Indication: PRODUCT USED FOR UNKNOWN INDICATION
     Dosage: 10 MG, AS NEEDED (MAXIMALLY 3 X DAILY)
     Route: 065
  5. MARCOUMAR [Concomitant]
     Active Substance: PHENPROCOUMON
     Indication: PULMONARY EMBOLISM
     Route: 048
     Dates: start: 200911
  6. STALEVO [Concomitant]
     Active Substance: CARBIDOPA\ENTACAPONE\LEVODOPA
     Indication: PRODUCT USED FOR UNKNOWN INDICATION
     Dosage: 1 DF (125/31.25/200), 4 TIMES DAILY
     Route: 065
  7. LEVODOPA [Concomitant]
     Active Substance: LEVODOPA
     Indication: PARKINSON^S DISEASE
     Route: 048
     Dates: start: 20160413
  8. OXYGESIC [Concomitant]
     Active Substance: OXYCODONE
     Indication: TUMOUR PAIN
     Route: 048
     Dates: start: 201412
  9. ENZALUTAMIDE [Suspect]
     Active Substance: ENZALUTAMIDE
     Indication: PROSTATE CANCER
     Route: 048
     Dates: start: 20150120
  10. PREDNISOLON                        /00016201/ [Concomitant]
     Active Substance: PREDNISOLONE
     Indication: SUPPORTIVE CARE
     Route: 048
     Dates: start: 20090415
  11. CALCIUM EFFERVESCENS               /01767901/ [Concomitant]
     Indication: HYPOCALCAEMIA
     Route: 048
     Dates: start: 2009
  12. CYMBALTA [Concomitant]
     Active Substance: DULOXETINE HYDROCHLORIDE
     Indication: TUMOUR PAIN
     Route: 048
     Dates: start: 201412
  13. PANTOZOL [Concomitant]
     Active Substance: PANTOPRAZOLE SODIUM
     Indication: PRODUCT USED FOR UNKNOWN INDICATION
     Route: 065
  14. TARGIN [Concomitant]
     Active Substance: NALOXONE HYDROCHLORIDE\OXYCODONE HYDROCHLORIDE
     Indication: TUMOUR PAIN
     Route: 048
     Dates: start: 201412
  15. XGEVA [Concomitant]
     Active Substance: DENOSUMAB
     Indication: PROSTATE CANCER
     Route: 058
     Dates: start: 20120207
  16. NOVALGIN [Concomitant]
     Active Substance: METAMIZOLE SODIUM
     Indication: PRODUCT USED FOR UNKNOWN INDICATION
     Dosage: 40 DROPS, AS NEEDED (MAXIMALLY 4 X DAILY)
     Route: 065
  17. MADOPAR [Concomitant]
     Active Substance: BENSERAZIDE HYDROCHLORIDE\LEVODOPA
     Dosage: 100/25, ONCE DAILY (MORNING)
     Route: 048
  18. MIRTAZAPINE. [Concomitant]
     Active Substance: MIRTAZAPINE
     Indication: PRODUCT USED FOR UNKNOWN INDICATION
     Route: 065
  19. SPASMEX                            /00376202/ [Concomitant]
     Active Substance: TROSPIUM CHLORIDE
     Indication: HYPERTONIC BLADDER
     Route: 048
     Dates: start: 20161129
  20. KEPPRA [Concomitant]
     Active Substance: LEVETIRACETAM
     Indication: PRODUCT USED FOR UNKNOWN INDICATION
     Route: 065
  21. FRAXIPARIN                         /00889603/ [Concomitant]
     Active Substance: HEPARIN CALCIUM
     Indication: PRODUCT USED FOR UNKNOWN INDICATION
     Dosage: 0.4 ML, ONCE DAILY
     Route: 058

REACTIONS (1)
  - Subdural haemorrhage [Recovered/Resolved]

NARRATIVE: CASE EVENT DATE: 20161221
